FAERS Safety Report 6464271-2 (Version None)
Quarter: 2009Q4

REPORT INFORMATION
  Report Type: 
  Country: None (occurrence: None)
  Receive Date: 20091201
  Receipt Date: 20091123
  Transmission Date: 20100525
  Serious: Yes (Other)
  Sender: FDA-Public Use
  Company Number: GXKR2009GB12830

PATIENT
  Age: 65 Year
  Sex: Female

DRUGS (3)
  1. ALENDRONIC ACID (NGX) [Suspect]
     Dosage: 70 MG, QW
     Route: 048
  2. INSULIN [Concomitant]
  3. CORTICOSTEROIDS [Concomitant]

REACTIONS (1)
  - HYPOGLYCAEMIA [None]
